FAERS Safety Report 18963793 (Version 1)
Quarter: 2021Q1

REPORT INFORMATION
  Report Type: Spontaneous
  Country: US (occurrence: US)
  Receive Date: 20210303
  Receipt Date: 20210303
  Transmission Date: 20210420
  Serious: Yes (Hospitalization)
  Sender: FDA-Public Use
  Company Number: US-ELI_LILLY_AND_COMPANY-US202102013151

PATIENT
  Age: 74 Year
  Sex: Female

DRUGS (1)
  1. BAMLANIVIMAB 700MG [Suspect]
     Active Substance: BAMLANIVIMAB
     Indication: COVID-19 PNEUMONIA
     Dosage: 700 MG, SINGLE
     Route: 042
     Dates: start: 20210128, end: 20210128

REACTIONS (9)
  - Hypotension [Not Recovered/Not Resolved]
  - COVID-19 pneumonia [Unknown]
  - Pyrexia [Recovered/Resolved]
  - Loss of consciousness [Unknown]
  - Hypotension [Recovered/Resolved]
  - Dehydration [Unknown]
  - Cerebral disorder [Unknown]
  - Vomiting [Recovered/Resolved]
  - Chills [Recovered/Resolved]

NARRATIVE: CASE EVENT DATE: 20210128
